FAERS Safety Report 9554115 (Version 2)
Quarter: 2014Q3

REPORT INFORMATION
  Report Type: Spontaneous
  Country: US (occurrence: None)
  Receive Date: 20130815
  Receipt Date: 20140815
  Transmission Date: 20150326
  Serious: Yes (Hospitalization, Other)
  Sender: FDA-Public Use
  Company Number: ADR-2013-00887

PATIENT
  Age: 19 Year
  Sex: Female

DRUGS (1)
  1. LIORESAL [Suspect]
     Active Substance: BACLOFEN
     Indication: MUSCLE SPASTICITY
     Route: 037
     Dates: start: 20091120

REACTIONS (6)
  - Bradycardia [None]
  - Hypotension [None]
  - Hyperhidrosis [None]
  - Hypertonia [None]
  - Sedation [None]
  - Therapeutic response decreased [None]

NARRATIVE: CASE EVENT DATE: 20120901
